FAERS Safety Report 14794681 (Version 1)
Quarter: 2018Q2

REPORT INFORMATION
  Report Type: Spontaneous
  Country: HR (occurrence: HR)
  Receive Date: 20180423
  Receipt Date: 20180423
  Transmission Date: 20180711
  Serious: Yes (Death)
  Sender: FDA-Public Use
  Company Number: HR-DSJP-DSE-2018-114919

PATIENT

DRUGS (11)
  1. LIXIANA [Suspect]
     Active Substance: EDOXABAN TOSYLATE
     Indication: ATRIAL FIBRILLATION
     Dosage: 30 MG, QD
     Route: 048
     Dates: start: 2017, end: 20170531
  2. TRITTICO [Concomitant]
     Active Substance: TRAZODONE HYDROCHLORIDE
     Indication: DEPRESSION
     Dosage: UNK
     Route: 048
     Dates: start: 2017
  3. BISOPROLOL [Concomitant]
     Active Substance: BISOPROLOL
     Indication: CARDIOMYOPATHY
     Dosage: 0.5 DF, BID
     Route: 048
     Dates: start: 2017
  4. SERTRALIN GENERA [Concomitant]
     Indication: DEPRESSION
     Dosage: (1)
     Route: 048
     Dates: start: 2017
  5. TAMSULOZIN [Concomitant]
     Indication: BENIGN PROSTATIC HYPERPLASIA
     Dosage: UNK
     Route: 048
     Dates: start: 2017
  6. RIVASTIGMIN                        /01383201/ [Concomitant]
     Indication: DEMENTIA
     Dosage: UNK
     Route: 048
     Dates: start: 2017
  7. MADOPAR [Concomitant]
     Active Substance: BENSERAZIDE HYDROCHLORIDE\LEVODOPA
     Indication: PARKINSON^S DISEASE
     Dosage: 2 DF, QD
     Route: 048
     Dates: start: 2017
  8. CEREBOKAN [Concomitant]
     Active Substance: GINKGO
     Indication: DEMENTIA
     Dosage: UNK
     Route: 048
     Dates: start: 2017
  9. BETAHISTIN PHARMAS [Concomitant]
     Indication: VERTIGO
     Route: 048
     Dates: start: 2017
  10. NICOLAN                            /00655101/ [Concomitant]
     Indication: CARDIOMYOPATHY
     Dosage: UNK
     Route: 048
     Dates: start: 2017
  11. MAGNONORM [Concomitant]
     Active Substance: MAGNESIUM
     Indication: PRODUCT USED FOR UNKNOWN INDICATION
     Dosage: UNK
     Route: 048
     Dates: start: 2017

REACTIONS (4)
  - Overdose [Fatal]
  - Headache [Fatal]
  - Hemiplegia [Fatal]
  - Haemorrhage intracranial [Fatal]

NARRATIVE: CASE EVENT DATE: 20170531
